FAERS Safety Report 6874612-X (Version None)
Quarter: 2010Q3

REPORT INFORMATION
  Report Type: 
  Country: None (occurrence: None)
  Receive Date: 20100722
  Receipt Date: 20100708
  Transmission Date: 20110219
  Serious: Yes (Hospitalization, Other)
  Sender: FDA-Public Use
  Company Number: 2010MA000674

PATIENT
  Age: 21 Year
  Sex: Male

DRUGS (6)
  1. FEVERALL [Suspect]
     Indication: PROCEDURAL PAIN
     Dosage: 1 GM;QID;IV
     Route: 042
     Dates: start: 20100525, end: 20100527
  2. RAMIPRIL (CON.) [Concomitant]
  3. BISOPROLOL (CON.) [Concomitant]
  4. METOCLOPRAMIDE (CON.) [Concomitant]
  5. CO-AMOXICLAV (CON.) [Concomitant]
  6. RANITIDINE (CON.) [Concomitant]

REACTIONS (1)
  - LIVER FUNCTION TEST ABNORMAL [None]
